FAERS Safety Report 4357602-0 (Version None)
Quarter: 2004Q2

REPORT INFORMATION
  Report Type: 
  Country: None (occurrence: None)
  Receive Date: 20040512
  Receipt Date: 20040512
  Transmission Date: 20050107
  Serious: Yes (Disabling)
  Sender: FDA-Public Use
  Company Number: None

PATIENT
  Sex: Female
  Weight: 99.3377 kg

DRUGS (7)
  1. CIPRO [Suspect]
     Indication: PNEUMONIA ASPIRATION
     Dosage: 500 MG BID ORAL
     Route: 048
     Dates: start: 20040420, end: 20040505
  2. ULTRACET [Concomitant]
  3. AMBIEN [Concomitant]
  4. LIBRAX [Concomitant]
  5. IMIPRAMINE [Concomitant]
  6. OMEPRAZOLE [Concomitant]
  7. CELEBREX [Concomitant]

REACTIONS (2)
  - ARTHRALGIA [None]
  - JOINT SWELLING [None]
